FAERS Safety Report 9438463 (Version 1)
Quarter: 2013Q3

REPORT INFORMATION
  Report Type: Spontaneous
  Country: US (occurrence: US)
  Receive Date: 20130802
  Receipt Date: 20130802
  Transmission Date: 20140515
  Serious: No
  Sender: FDA-Public Use
  Company Number: US-BRISTOL-MYERS SQUIBB COMPANY-17323668

PATIENT
  Age: 65 Year
  Sex: Male
  Weight: 71.2 kg

DRUGS (1)
  1. COUMADIN TABS [Suspect]
     Dosage: 1DF-HALF OF 3MG TAB AND  7.5MG (TOTAL=-9MG)

REACTIONS (11)
  - Rash [Unknown]
  - Dry skin [Unknown]
  - Chest pain [Unknown]
  - Body temperature fluctuation [Unknown]
  - Headache [Unknown]
  - Gastritis [Unknown]
  - Decreased appetite [Unknown]
  - Weight decreased [Unknown]
  - Post procedural haemorrhage [Unknown]
  - Pallor [Unknown]
  - Hepatitis A [Unknown]
